FAERS Safety Report 5158895-2 (Version None)
Quarter: 2006Q4

REPORT INFORMATION
  Report Type: 
  Country: None (occurrence: None)
  Receive Date: 20061117
  Receipt Date: 20061101
  Transmission Date: 20070319
  Serious: Yes (Hospitalization)
  Sender: FDA-Public Use
  Company Number: 232228

PATIENT
  Age: 38 Year
  Sex: Female

DRUGS (7)
  1. AVASTIN [Suspect]
     Indication: BREAST CANCER METASTATIC
     Dosage: 10 MG/KG, Q2W, INTRAVENOUS
     Route: 042
     Dates: start: 20060103
  2. DOXORUBICIN HCL [Suspect]
     Indication: BREAST CANCER METASTATIC
     Dosage: 60 MG/M2, Q2W, INTRAVENOUS
     Route: 042
     Dates: start: 20060103
  3. CYCLOPHOSPHAMIDE [Suspect]
     Indication: BREAST CANCER METASTATIC
     Dosage: 600 MG/M2, Q2W, INTRAVENOUS
     Route: 042
     Dates: start: 20060103
  4. NEUPOGEN [Suspect]
     Indication: BREAST CANCER METASTATIC
     Dosage: 6 MG, Q2W, SUBCUTANEOUS
     Route: 058
     Dates: start: 20060103
  5. PACLITAXEL [Suspect]
     Indication: BREAST CANCER METASTATIC
     Dosage: 175 MG/M2, Q2W, INTRAVENOUS
     Route: 042
     Dates: start: 20060315
  6. BENADRYL [Concomitant]
  7. TYLENOL (CAPLET) [Concomitant]

REACTIONS (5)
  - ARTHRALGIA [None]
  - DERMATITIS EXFOLIATIVE [None]
  - MYALGIA [None]
  - NASOPHARYNGITIS [None]
  - VIRAL INFECTION [None]
